FAERS Safety Report 9459491 (Version 1)
Quarter: 2013Q3

REPORT INFORMATION
  Report Type: Spontaneous
  Country: RU (occurrence: RU)
  Receive Date: 20130815
  Receipt Date: 20130815
  Transmission Date: 20140515
  Serious: Yes (Death)
  Sender: FDA-Public Use
  Company Number: RU-ASTRAZENECA-2013SE63075

PATIENT
  Age: 60 Year
  Sex: Male

DRUGS (13)
  1. BRILINTA [Suspect]
     Indication: ACUTE MYOCARDIAL INFARCTION
     Route: 048
     Dates: start: 20130807
  2. ATORVASTATIN [Concomitant]
     Indication: ACUTE MYOCARDIAL INFARCTION
     Route: 048
     Dates: start: 20130807
  3. HEPARIN [Concomitant]
     Indication: ACUTE MYOCARDIAL INFARCTION
     Route: 041
     Dates: start: 20130807
  4. OMEZ [Concomitant]
     Indication: ACUTE MYOCARDIAL INFARCTION
     Route: 048
     Dates: start: 20130807
  5. PHYSICAL SOLUTION [Concomitant]
     Indication: ACUTE MYOCARDIAL INFARCTION
     Dates: start: 20130807
  6. POTASSIUM CHLORIDE [Concomitant]
     Indication: ACUTE MYOCARDIAL INFARCTION
     Dates: start: 20130807
  7. MAGNESIUM SULPHATE [Concomitant]
     Indication: ACUTE MYOCARDIAL INFARCTION
     Dates: start: 20130807
  8. NITROGLYCERIN [Concomitant]
     Indication: ACUTE MYOCARDIAL INFARCTION
     Route: 048
     Dates: start: 20130807
  9. SIBAZON [Concomitant]
     Indication: ACUTE MYOCARDIAL INFARCTION
     Route: 030
     Dates: start: 20130807
  10. EGILOK [Concomitant]
     Indication: ACUTE MYOCARDIAL INFARCTION
     Route: 048
     Dates: start: 20130807
  11. CARDIOMAGNYL [Concomitant]
     Indication: ACUTE MYOCARDIAL INFARCTION
     Route: 048
     Dates: start: 20130807
  12. ENALAPRIL [Concomitant]
     Indication: ACUTE MYOCARDIAL INFARCTION
     Route: 048
     Dates: start: 20130807
  13. LASIX [Concomitant]
     Indication: ACUTE MYOCARDIAL INFARCTION
     Route: 030
     Dates: start: 20130807

REACTIONS (1)
  - Cardiac failure acute [Fatal]
